FAERS Safety Report 6412929-3 (Version None)
Quarter: 2009Q4

REPORT INFORMATION
  Report Type: 
  Country: None (occurrence: None)
  Receive Date: 20091023
  Receipt Date: 20091012
  Transmission Date: 20100525
  Serious: Yes (Other)
  Sender: FDA-Public Use
  Company Number: CH-GENENTECH-292655

PATIENT

DRUGS (1)
  1. MABTHERA [Suspect]
     Indication: B-CELL LYMPHOMA
     Dosage: 375 MG/M2, UNK
     Route: 065

REACTIONS (6)
  - BREAST CANCER [None]
  - ILEUS [None]
  - INFECTION [None]
  - NEOPLASM MALIGNANT [None]
  - NEUTROPENIA [None]
  - PERITONITIS [None]
